FAERS Safety Report 15320237 (Version 2)
Quarter: 2018Q4

REPORT INFORMATION
  Report Type: Spontaneous
  Country: US (occurrence: US)
  Receive Date: 20180827
  Receipt Date: 20181102
  Transmission Date: 20190204
  Serious: No
  Sender: FDA-Public Use
  Company Number: US-VIFOR (INTERNATIONAL) INC.-VIT-2018-07732

PATIENT
  Age: 62 Year
  Sex: Female
  Weight: 115.6 kg

DRUGS (7)
  1. VITAMINS NOS [Concomitant]
     Active Substance: VITAMINS
  2. WARFARIN [Concomitant]
     Active Substance: WARFARIN
  3. SYNTHROID [Concomitant]
     Active Substance: LEVOTHYROXINE SODIUM
  4. VELPHORO [Suspect]
     Active Substance: FERRIC OXYHYDROXIDE
     Indication: HYPERPHOSPHATAEMIA
     Route: 048
     Dates: start: 201807, end: 20180728
  5. WARFARIN [Concomitant]
     Active Substance: WARFARIN
  6. COREG [Concomitant]
     Active Substance: CARVEDILOL
  7. VITAMIN D3 [Concomitant]
     Active Substance: CHOLECALCIFEROL
     Dosage: 2000 UNITS

REACTIONS (1)
  - Rash papular [Recovered/Resolved]

NARRATIVE: CASE EVENT DATE: 2018
